FAERS Safety Report 4314319-6 (Version None)
Quarter: 2004Q1

REPORT INFORMATION
  Report Type: 
  Country: None (occurrence: None)
  Receive Date: 20040309
  Receipt Date: 20040309
  Transmission Date: 20041129
  Serious: Yes (Other)
  Sender: FDA-Public Use
  Company Number: None

PATIENT
  Age: 25 Year
  Sex: Male
  Weight: 83.9154 kg

DRUGS (1)
  1. PAXIL [Suspect]
     Indication: ANXIETY
     Dosage: 20 MG DAY ORAL
     Route: 048
     Dates: start: 20031027, end: 20040209

REACTIONS (7)
  - ABNORMAL SENSATION IN EYE [None]
  - ANOREXIA [None]
  - DRUG WITHDRAWAL SYNDROME [None]
  - EYE PAIN [None]
  - IRRITABILITY [None]
  - SOCIAL PROBLEM [None]
  - TREATMENT NONCOMPLIANCE [None]
